FAERS Safety Report 19614633 (Version 3)
Quarter: 2021Q3

REPORT INFORMATION
  Report Type: Report from Study
  Country: DE (occurrence: DE)
  Receive Date: 20210727
  Receipt Date: 20210817
  Transmission Date: 20211014
  Serious: Yes (Other)
  Sender: FDA-Public Use
  Company Number: DE-MYLANLABS-2021M1044309

PATIENT
  Age: 92 Year
  Sex: Female
  Weight: 64 kg

DRUGS (2)
  1. ANASTROZOLE. [Suspect]
     Active Substance: ANASTROZOLE
     Indication: BREAST CANCER
     Dosage: 1 MG, QD
     Route: 048
     Dates: start: 20210118
  2. KISQALI [Suspect]
     Active Substance: RIBOCICLIB
     Indication: BREAST CANCER
     Dosage: 200 MG, QD (SCHEME 21 DAYS INTAKE, THAN 7 DAYS PAUSE)
     Route: 048
     Dates: start: 20210118, end: 20210121

REACTIONS (7)
  - Myocardial infarction [Unknown]
  - QRS axis abnormal [Unknown]
  - Ventricular extrasystoles [Unknown]
  - Electrocardiogram T wave abnormal [Unknown]
  - Electrocardiogram QT prolonged [Recovering/Resolving]
  - Intraventricular haemorrhage [Unknown]
  - Ischaemia [Unknown]

NARRATIVE: CASE EVENT DATE: 20210121
